FAERS Safety Report 4331562-0 (Version None)
Quarter: 2004Q2

REPORT INFORMATION
  Report Type: 
  Country: None (occurrence: None)
  Receive Date: 20040402
  Receipt Date: 20040326
  Transmission Date: 20050107
  Serious: Yes (Hospitalization)
  Sender: FDA-Public Use
  Company Number: CH-MERCK-0403CHE00047

PATIENT
  Sex: Male

DRUGS (2)
  1. VIOXX [Suspect]
     Indication: BACK PAIN
     Route: 048
     Dates: start: 20040301, end: 20040301
  2. TIZANIDINE HYDROCHLORIDE [Concomitant]
     Indication: BACK PAIN
     Route: 048
     Dates: start: 20040301

REACTIONS (2)
  - GASTROINTESTINAL PAIN [None]
  - VARICELLA [None]
